FAERS Safety Report 8688310 (Version 7)
Quarter: 2012Q4

REPORT INFORMATION
  Report Type: 
  Country: IT (occurrence: IT)
  Receive Date: 20120727
  Receipt Date: 20121207
  Transmission Date: 20130627
  Serious: Yes (Death, Hospitalization, Other)
  Sender: FDA-Public Use
  Company Number: IT-BIOGENIDEC-2012BI026546

PATIENT
  Age: 35 Year
  Sex: Female

DRUGS (2)
  1. TYSABRI [Suspect]
     Indication: RELAPSING-REMITTING MULTIPLE SCLEROSIS
     Route: 042
     Dates: start: 20070401, end: 20110601
  2. LAMOTRIGINE [Concomitant]
     Dates: start: 20080615, end: 20120706

REACTIONS (5)
  - Convulsion [Unknown]
  - Transaminases increased [Unknown]
  - Urinary tract infection fungal [Unknown]
  - Septic shock [Fatal]
  - Multi-organ disorder [Not Recovered/Not Resolved]
